FAERS Safety Report 9248249 (Version 3)
Quarter: 2013Q2

REPORT INFORMATION
  Report Type: Report from Study
  Country: GB (occurrence: GB)
  Receive Date: 20130423
  Receipt Date: 20130507
  Transmission Date: 20140414
  Serious: Yes (Other)
  Sender: FDA-Public Use
  Company Number: GB-VERTEX PHARMACEUTICALS INC.-2013-004080

PATIENT
  Age: 55 Year
  Sex: Male

DRUGS (6)
  1. VX-950 (TELAPREVIR) [Suspect]
     Indication: HEPATITIS C
     Dosage: 750 MG, TID
     Route: 048
     Dates: start: 20130311
  2. VX-950 (TELAPREVIR) [Suspect]
     Dosage: UNK, TID
     Dates: start: 20130416
  3. RIBAVIRIN [Suspect]
     Indication: HEPATITIS C
     Dosage: DOSAGE FORM: UNKNOWN
     Route: 048
     Dates: start: 20130311
  4. RIBAVIRIN [Suspect]
     Dosage: DOSAGE FORM: UNKNOWN
     Route: 048
     Dates: start: 20130416
  5. PEG INTERFERON [Suspect]
     Indication: HEPATITIS C
     Dosage: DOSAGE FORM: INJECTION
     Route: 058
     Dates: start: 20130311
  6. PEG INTERFERON [Suspect]
     Dosage: DOSAGE FORM: INJECTION
     Route: 058
     Dates: start: 20130416

REACTIONS (7)
  - Depression [Not Recovered/Not Resolved]
  - Jaundice [Not Recovered/Not Resolved]
  - Rash [Not Recovered/Not Resolved]
  - Depressed mood [Not Recovered/Not Resolved]
  - Proctalgia [Not Recovered/Not Resolved]
  - Haemorrhoids [Not Recovered/Not Resolved]
  - Erythema [Not Recovered/Not Resolved]
